FAERS Safety Report 13413966 (Version 1)
Quarter: 2017Q2

REPORT INFORMATION
  Report Type: Spontaneous
  Country: US (occurrence: US)
  Receive Date: 20170407
  Receipt Date: 20170407
  Transmission Date: 20170830
  Serious: No
  Sender: FDA-Public Use
  Company Number: US-ASTRAZENECA-2017SE32772

PATIENT
  Sex: Female

DRUGS (1)
  1. SYMBICORT [Suspect]
     Active Substance: BUDESONIDE\FORMOTEROL FUMARATE DIHYDRATE
     Route: 055
     Dates: start: 20170321, end: 20170326

REACTIONS (14)
  - Oropharyngeal pain [Unknown]
  - Swollen tongue [Unknown]
  - Palpitations [Unknown]
  - General physical health deterioration [Unknown]
  - Respiratory rate increased [Unknown]
  - Fatigue [Unknown]
  - Headache [Unknown]
  - Dyspnoea [Unknown]
  - Dry mouth [Unknown]
  - Adverse drug reaction [Unknown]
  - Thirst [Unknown]
  - Lung disorder [Unknown]
  - Heart rate increased [Unknown]
  - Dysphonia [Unknown]
